FAERS Safety Report 13781170 (Version 1)
Quarter: 2017Q3

REPORT INFORMATION
  Report Type: Spontaneous
  Country: TW (occurrence: TW)
  Receive Date: 20170724
  Receipt Date: 20170724
  Transmission Date: 20171127
  Serious: Yes (Other)
  Sender: FDA-Public Use
  Company Number: TW-009507513-1707TWN009134

PATIENT

DRUGS (1)
  1. KEYTRUDA [Suspect]
     Active Substance: PEMBROLIZUMAB
     Indication: BILE DUCT CANCER
     Dosage: 3 CYCLES
     Route: 042
     Dates: start: 2017

REACTIONS (2)
  - Retroperitoneal haematoma [Unknown]
  - Off label use [Unknown]

NARRATIVE: CASE EVENT DATE: 2017
